FAERS Safety Report 18212209 (Version 1)
Quarter: 2020Q3

REPORT INFORMATION
  Report Type: Spontaneous
  Country: US (occurrence: US)
  Receive Date: 20200831
  Receipt Date: 20200831
  Transmission Date: 20201103
  Serious: Yes (Hospitalization, Other)
  Sender: FDA-Public Use
  Company Number: US-PFIZER INC-2020332408

PATIENT
  Age: 37 Year
  Sex: Male

DRUGS (5)
  1. CLONIDINE. [Concomitant]
     Active Substance: CLONIDINE
     Indication: HYPERTENSION
     Dosage: UNK (INCREASED)
  2. ACETAZOLAMIDE. [Concomitant]
     Active Substance: ACETAZOLAMIDE
     Indication: GLAUCOMA
     Dosage: 500 MG, 4X/DAY (ORALLY PER 6 H)
     Route: 048
  3. NPH INSULIN [Concomitant]
     Active Substance: INSULIN BEEF
     Indication: TYPE 1 DIABETES MELLITUS
     Dosage: UNK
  4. MANNITOL. [Suspect]
     Active Substance: MANNITOL
     Indication: GLAUCOMA
     Dosage: 400 G
     Route: 042
  5. FUROSEMIDE. [Suspect]
     Active Substance: FUROSEMIDE
     Indication: GLAUCOMA
     Dosage: 20 MG, DAILY
     Route: 048

REACTIONS (1)
  - Acute kidney injury [Recovering/Resolving]
